FAERS Safety Report 8708957 (Version 3)
Quarter: 2012Q4

REPORT INFORMATION
  Report Type: Report from Study
  Country: BE (occurrence: BE)
  Receive Date: 20120806
  Receipt Date: 20121003
  Transmission Date: 20130627
  Serious: Yes (Hospitalization)
  Sender: FDA-Public Use
  Company Number: BE-PFIZER INC-2012188268

PATIENT
  Age: 61 Year
  Sex: Male
  Weight: 108 kg

DRUGS (6)
  1. GENOTROPIN [Suspect]
     Indication: HYPOPITUITARISM
     Dosage: 0.2 mg, 1xday, 7injections/week
     Route: 058
     Dates: start: 20020603
  2. LEVOTHYROXINE [Concomitant]
     Indication: BLOOD THYROID STIMULATING HORMONE DECREASED
     Dosage: UNK
     Dates: start: 19640101
  3. VITAMIN D [Concomitant]
     Indication: HYPOPARATHYROIDISM
     Dosage: UNK
     Dates: start: 19640101
  4. APROVEL [Concomitant]
     Indication: HYPERTENSION
     Dosage: UNK
     Dates: start: 19990301
  5. ESTULIC [Concomitant]
     Indication: HYPERTENSION
     Dosage: UNK
     Dates: start: 19990301
  6. PLENDIL [Concomitant]
     Indication: HYPERTENSION
     Dosage: UNK
     Dates: start: 19990301

REACTIONS (1)
  - Depression [Unknown]
